FAERS Safety Report 6568718-2 (Version None)
Quarter: 2010Q1

REPORT INFORMATION
  Report Type: 
  Country: None (occurrence: None)
  Receive Date: 20100203
  Receipt Date: 20100128
  Transmission Date: 20100710
  Serious: Yes (Life-Threatening, Hospitalization)
  Sender: FDA-Public Use
  Company Number: GXKR2010DE01226

PATIENT
  Sex: Female

DRUGS (2)
  1. IBUPROFEN (NGX) [Suspect]
     Route: 065
  2. MACROGOL [Suspect]
     Indication: PREMEDICATION
     Dosage: 1 L, UNK
     Route: 048

REACTIONS (7)
  - ANAPHYLACTIC SHOCK [None]
  - DYSPNOEA [None]
  - EMERGENCY CARE [None]
  - GASTROINTESTINAL PAIN [None]
  - HYPERSENSITIVITY [None]
  - LOSS OF CONSCIOUSNESS [None]
  - RESPIRATORY DISTRESS [None]
